FAERS Safety Report 7874844-8 (Version None)
Quarter: 2011Q4

REPORT INFORMATION
  Report Type: 
  Country: None (occurrence: None)
  Receive Date: 20111031
  Receipt Date: 20111024
  Transmission Date: 20120403
  Serious: Yes (Other)
  Sender: FDA-Public Use
  Company Number: IT-JNJFOC-20111011399

PATIENT
  Age: 16 Year
  Sex: Female

DRUGS (1)
  1. RISPERDAL [Suspect]
     Indication: MENTAL DISORDER
     Route: 048

REACTIONS (2)
  - INTENTIONAL OVERDOSE [None]
  - SELF INJURIOUS BEHAVIOUR [None]
